FAERS Safety Report 11065920 (Version 2)
Quarter: 2015Q2

REPORT INFORMATION
  Report Type: Spontaneous
  Country: US (occurrence: US)
  Receive Date: 20150425
  Receipt Date: 20150525
  Transmission Date: 20150821
  Serious: Yes (Other)
  Sender: FDA-Public Use
  Company Number: US-JNJFOC-20120608467

PATIENT
  Age: 46 Year
  Sex: Female
  Weight: 68.49 kg

DRUGS (2)
  1. CIPROFLOXACIN. [Suspect]
     Active Substance: CIPROFLOXACIN
     Indication: INFECTION
     Route: 065
  2. LEVAQUIN [Suspect]
     Active Substance: LEVOFLOXACIN
     Indication: SINUSITIS
     Route: 048
     Dates: start: 20050107, end: 20071130

REACTIONS (3)
  - Tendonitis [Unknown]
  - Tendon rupture [Unknown]
  - Depression [Unknown]

NARRATIVE: CASE EVENT DATE: 200807
